FAERS Safety Report 8995850 (Version 1)
Quarter: 2013Q1

REPORT INFORMATION
  Report Type: Report from Study
  Country: US (occurrence: US)
  Receive Date: 20130103
  Receipt Date: 20130103
  Transmission Date: 20140127
  Serious: Yes (Hospitalization, Other)
  Sender: FDA-Public Use
  Company Number: US-ABBOTT-12P-163-1028824-00

PATIENT
  Sex: Female
  Weight: 47.22 kg

DRUGS (22)
  1. HUMIRA [Suspect]
     Indication: RHEUMATOID ARTHRITIS
     Dates: start: 201111, end: 201112
  2. HUMIRA [Suspect]
     Dates: start: 201112, end: 201203
  3. HUMIRA [Suspect]
     Dates: start: 201203, end: 20121203
  4. ORENCIA [Concomitant]
     Indication: PRODUCT USED FOR UNKNOWN INDICATION
  5. LYRICA [Concomitant]
     Indication: FIBROMYALGIA
  6. LIPTOR [Concomitant]
     Indication: CEREBROVASCULAR ACCIDENT
  7. CLONAZEPAM [Concomitant]
     Indication: INSOMNIA
  8. ADDERALL [Concomitant]
     Indication: PRODUCT USED FOR UNKNOWN INDICATION
  9. SOMA [Concomitant]
     Indication: HYPOTONIA
  10. LEUCOVORIN CALCIUM [Concomitant]
     Indication: ALOPECIA
  11. LEUCOVORIN CALCIUM [Concomitant]
     Indication: BONE LOSS
  12. MESTINON [Concomitant]
     Indication: PRODUCT USED FOR UNKNOWN INDICATION
  13. CENTRUM SILVER [Concomitant]
     Indication: PRODUCT USED FOR UNKNOWN INDICATION
  14. ALLEGRA [Concomitant]
     Indication: HYPERSENSITIVITY
  15. ASPIRIN [Concomitant]
     Indication: CARDIOVASCULAR EVENT PROPHYLAXIS
  16. ASPIRIN [Concomitant]
     Indication: CEREBROVASCULAR ACCIDENT PROPHYLAXIS
  17. ULTRACET [Concomitant]
     Indication: PAIN
  18. FROVA [Concomitant]
     Indication: MIGRAINE
  19. MECLIZINE [Concomitant]
     Indication: VERTIGO
  20. ZOFRAN [Concomitant]
     Indication: VERTIGO
  21. COMBIVENT [Concomitant]
     Indication: ASTHMA
  22. COMBIVENT [Concomitant]
     Indication: ASTHMA

REACTIONS (12)
  - Intervertebral disc protrusion [Recovering/Resolving]
  - Spinal laminectomy [Recovering/Resolving]
  - Fall [Unknown]
  - Nausea [Unknown]
  - Dizziness [Unknown]
  - Vertigo [Not Recovered/Not Resolved]
  - Local swelling [Not Recovered/Not Resolved]
  - Pain in extremity [Not Recovered/Not Resolved]
  - Arthralgia [Not Recovered/Not Resolved]
  - Drug ineffective [Not Recovered/Not Resolved]
  - Rheumatoid arthritis [Unknown]
  - Joint swelling [Not Recovered/Not Resolved]
